FAERS Safety Report 8848344 (Version 2)
Quarter: 2012Q4

REPORT INFORMATION
  Report Type: 
  Country: JP (occurrence: JP)
  Receive Date: 20121019
  Receipt Date: 20121026
  Transmission Date: 20130627
  Serious: Yes (Life-Threatening, Hospitalization)
  Sender: FDA-Public Use
  Company Number: JP-GE HEALTHCARE MEDICAL DIAGNOSTICS-OMPQ-NO-1210S-1094

PATIENT
  Age: 48 Year
  Sex: Female

DRUGS (8)
  1. OMNIPAQUE [Suspect]
     Indication: PULMONARY FUNCTION TEST
     Route: 042
     Dates: start: 20121003, end: 20121003
  2. SOLU-CORTEF [Concomitant]
  3. VOLIBRIS [Concomitant]
  4. CARELOAD LA [Concomitant]
  5. VOGLIBOSE [Concomitant]
  6. BEZAFIBRATE [Concomitant]
  7. WARFARIN [Concomitant]
  8. LANSOPRAZOLE [Concomitant]

REACTIONS (5)
  - Anaphylactic shock [Recovered/Resolved]
  - Pruritus generalised [Recovered/Resolved]
  - Blood pressure systolic decreased [Recovered/Resolved]
  - Oxygen saturation decreased [Recovered/Resolved]
  - Bradycardia [Recovered/Resolved]
